FAERS Safety Report 25411012 (Version 1)
Quarter: 2025Q2

REPORT INFORMATION
  Report Type: Spontaneous
  Country: NO (occurrence: NO)
  Receive Date: 20250609
  Receipt Date: 20250609
  Transmission Date: 20250716
  Serious: Yes (Life-Threatening, Hospitalization)
  Sender: ACCORD
  Company Number: None

PATIENT
  Age: 83 Year
  Sex: Female

DRUGS (4)
  1. DONEPEZIL HYDROCHLORIDE [Suspect]
     Active Substance: DONEPEZIL HYDROCHLORIDE
     Indication: Dementia Alzheimer^s type
     Dosage: STRENGTH: 10 MG, 1 TABLET IN THE EVENING CONTINUED USE OF MEDICINAL PRODUCT
     Dates: start: 20231023
  2. PARALGIN [Concomitant]
     Indication: Pain
     Dates: start: 20250505
  3. ACETAMINOPHEN [Concomitant]
     Active Substance: ACETAMINOPHEN
     Indication: Pain
     Dosage: PARACETAMOL STRENGTH: 500 MG
  4. ZOPICLONE [Concomitant]
     Active Substance: ZOPICLONE
     Indication: Insomnia

REACTIONS (1)
  - Duodenal ulcer perforation [Unknown]

NARRATIVE: CASE EVENT DATE: 20250513
